FAERS Safety Report 9773489 (Version 1)
Quarter: 2013Q4

REPORT INFORMATION
  Report Type: Spontaneous
  Country: NZ (occurrence: NZ)
  Receive Date: 20131219
  Receipt Date: 20131219
  Transmission Date: 20140711
  Serious: Yes (Other)
  Sender: FDA-Public Use
  Company Number: PHHY2013NZ148520

PATIENT
  Age: 39 Year
  Sex: Female

DRUGS (5)
  1. CARBAMAZEPINE [Suspect]
     Dosage: UNK UKN, UNK
     Route: 048
  2. CITALOPRAM [Concomitant]
     Dosage: UNK UKN, UNK
     Route: 048
  3. SIMVASTATIN [Concomitant]
     Dosage: UNK UKN, UNK
     Route: 048
  4. METFORMIN [Concomitant]
     Dosage: UNK UKN, UNK
     Route: 048
  5. LEVOTHYROXINE [Concomitant]
     Dosage: UNK UKN, UNK
     Route: 048

REACTIONS (4)
  - Fungal infection [Unknown]
  - Psoriasis [Unknown]
  - Uveitis [Unknown]
  - Mouth ulceration [Unknown]
